FAERS Safety Report 20987301 (Version 1)
Quarter: 2022Q2

REPORT INFORMATION
  Report Type: Spontaneous
  Country: US (occurrence: None)
  Receive Date: 20220620
  Receipt Date: 20220620
  Transmission Date: 20220721
  Serious: Yes (Hospitalization)
  Sender: FDA-Public Use
  Company Number: None

PATIENT
  Age: 76 Year
  Sex: Male

DRUGS (1)
  1. TOBRAMYCIN [Suspect]
     Active Substance: TOBRAMYCIN
     Indication: Bronchiectasis
     Dosage: INHALE THE CONTENTS OF 1 AMPULE VIA NEBULIZER TWICE DAILY FOR 28 DAYS ON, THEN 28 DAYS OFF
     Route: 055
     Dates: start: 201502

REACTIONS (1)
  - Pneumonia [None]

NARRATIVE: CASE EVENT DATE: 20220301
